FAERS Safety Report 7433726-6 (Version None)
Quarter: 2011Q2

REPORT INFORMATION
  Report Type: 
  Country: None (occurrence: None)
  Receive Date: 20110424
  Receipt Date: 20110414
  Transmission Date: 20111010
  Serious: Yes (Other)
  Sender: FDA-Public Use
  Company Number: US-US-EMD SERONO, INC.-230267J10USA

PATIENT
  Sex: Female
  Weight: 82 kg

DRUGS (8)
  1. REBIF [Suspect]
     Indication: MULTIPLE SCLEROSIS
     Route: 058
     Dates: start: 20090109, end: 20091201
  2. SAVELLA [Concomitant]
     Indication: FIBROMYALGIA
     Route: 065
     Dates: start: 20100103
  3. REBIF [Suspect]
     Route: 058
     Dates: start: 20091201
  4. NUVIGIL [Concomitant]
     Indication: FATIGUE
     Route: 065
  5. CYMBALTA [Concomitant]
     Indication: FIBROMYALGIA
     Route: 065
     Dates: end: 20100102
  6. CALCIUM [Concomitant]
     Indication: VITAMIN D DEFICIENCY
     Route: 065
  7. WOMEN ONE A DAY VITAMINS [Concomitant]
     Indication: VITAMIN D DEFICIENCY
     Route: 065
  8. GABAPENTIN [Concomitant]
     Indication: NEURALGIA
     Route: 065

REACTIONS (1)
  - MENOMETRORRHAGIA [None]
